FAERS Safety Report 9231082 (Version 3)
Quarter: 2013Q2

REPORT INFORMATION
  Report Type: Spontaneous
  Country: IL (occurrence: IL)
  Receive Date: 20130415
  Receipt Date: 20130509
  Transmission Date: 20140414
  Serious: Yes (Other)
  Sender: FDA-Public Use
  Company Number: IL-NOVOPROD-374906

PATIENT
  Age: 75 Year
  Sex: Female

DRUGS (3)
  1. VICTOZA [Suspect]
     Indication: TYPE 2 DIABETES MELLITUS
     Dosage: 0.6 MG, QD
     Route: 065
  2. VICTOZA [Suspect]
     Dosage: 1.2 MG, QD
     Route: 065
  3. VICTOZA [Suspect]
     Dosage: UNKNOWN
     Route: 065

REACTIONS (1)
  - Cholestasis [Recovered/Resolved]
